FAERS Safety Report 13106274 (Version 1)
Quarter: 2017Q1

REPORT INFORMATION
  Report Type: Spontaneous
  Country: BE (occurrence: BE)
  Receive Date: 20170111
  Receipt Date: 20170111
  Transmission Date: 20170428
  Serious: Yes (Hospitalization)
  Sender: FDA-Public Use
  Company Number: BE-ASTRAZENECA-2016SF25589

PATIENT
  Sex: Female

DRUGS (1)
  1. SYMBICORT [Suspect]
     Active Substance: BUDESONIDE\FORMOTEROL FUMARATE DIHYDRATE
     Indication: BRONCHITIS
     Route: 055

REACTIONS (6)
  - Intentional self-injury [Unknown]
  - Product use issue [Unknown]
  - Depression [Unknown]
  - Off label use [Unknown]
  - Wrong technique in product usage process [Unknown]
  - Negative thoughts [Unknown]
